FAERS Safety Report 13616195 (Version 5)
Quarter: 2018Q4

REPORT INFORMATION
  Report Type: Spontaneous
  Country: US (occurrence: US)
  Receive Date: 20170606
  Receipt Date: 20181126
  Transmission Date: 20190204
  Serious: No
  Sender: FDA-Public Use
  Company Number: US-PFIZER INC-2017239512

PATIENT
  Age: 41 Year
  Sex: Female

DRUGS (6)
  1. TAXOTERE [Suspect]
     Active Substance: DOCETAXEL
     Indication: BREAST CANCER FEMALE
     Dosage: 140 MG, CYCLIC (EVERY THREE WEEKS, 02 CYCLES)
     Dates: start: 20121207, end: 20121228
  2. ZOFRAN [Concomitant]
     Active Substance: ONDANSETRON HYDROCHLORIDE
     Dosage: UNK
  3. ANASTROZOLE. [Concomitant]
     Active Substance: ANASTROZOLE
     Dosage: UNK
  4. DOCETAXEL. [Suspect]
     Active Substance: DOCETAXEL
     Indication: BREAST CANCER FEMALE
     Dosage: 140 MG, CYCLIC (EVERY THREE WEEKS, 02 CYCLES)
     Dates: start: 20121207, end: 20121228
  5. PARAPLATIN [Concomitant]
     Active Substance: CARBOPLATIN
     Indication: CHEMOTHERAPY
     Dosage: UNK
  6. HERCEPTIN [Concomitant]
     Active Substance: TRASTUZUMAB
     Indication: CHEMOTHERAPY
     Dosage: UNK

REACTIONS (5)
  - Alopecia [Recovered/Resolved]
  - Hair texture abnormal [Recovered/Resolved]
  - Madarosis [Recovered/Resolved]
  - Hair disorder [Recovered/Resolved]
  - Hair colour changes [Recovered/Resolved]

NARRATIVE: CASE EVENT DATE: 201212
